FAERS Safety Report 17889904 (Version 1)
Quarter: 2020Q2

REPORT INFORMATION
  Report Type: Spontaneous
  Country: DE (occurrence: DE)
  Receive Date: 20200612
  Receipt Date: 20200612
  Transmission Date: 20200714
  Serious: Yes (Other)
  Sender: FDA-Public Use
  Company Number: DE-ACCORD-185184

PATIENT
  Age: 62 Year
  Sex: Male
  Weight: 86 kg

DRUGS (4)
  1. HYDROXYCHLOROQUINE [Suspect]
     Active Substance: HYDROXYCHLOROQUINE
     Indication: COVID-19
     Route: 048
     Dates: start: 20200406, end: 20200411
  2. L-THYROXINE HENNING [Concomitant]
     Indication: HYPOTHYROIDISM
     Dosage: 75 UG,LONG-TERM MEDICATION
     Route: 048
  3. LAMOTRIGINE. [Concomitant]
     Active Substance: LAMOTRIGINE
     Indication: DEPRESSION
     Dosage: 50 MG,LONG-TERM MEDICATION
     Route: 048
  4. BRINTELLIX [Concomitant]
     Active Substance: VORTIOXETINE HYDROBROMIDE
     Indication: DEPRESSION
     Dosage: LONG-TERM MEDICATION,10MG
     Route: 048

REACTIONS (2)
  - Retinal tear [Not Recovered/Not Resolved]
  - Eye laser surgery [Unknown]

NARRATIVE: CASE EVENT DATE: 20200502
